FAERS Safety Report 12570802 (Version 1)
Quarter: 2016Q3

REPORT INFORMATION
  Report Type: Report from Study
  Country: US (occurrence: US)
  Receive Date: 20160719
  Receipt Date: 20160719
  Transmission Date: 20161109
  Serious: No
  Sender: FDA-Public Use
  Company Number: US-AMGEN-USASL2016068595

PATIENT
  Age: 45 Year
  Sex: Female
  Weight: 119.8 kg

DRUGS (21)
  1. CORLANOR [Suspect]
     Active Substance: IVABRADINE HYDROCHLORIDE
     Indication: SINUS TACHYCARDIA
     Dosage: 2.5 MG, BID
     Route: 048
     Dates: start: 20160520
  2. CARDIZEM [Concomitant]
     Active Substance: DILTIAZEM HYDROCHLORIDE
     Dosage: 240 MG, ONCE A DAY.
  3. LASIX [Concomitant]
     Active Substance: FUROSEMIDE
     Dosage: 40 MG, AS PER NEED.
  4. VESICARE [Concomitant]
     Active Substance: SOLIFENACIN SUCCINATE
     Dosage: 5 MG, AS DIRECTED
  5. ZYRTEC [Concomitant]
     Active Substance: CETIRIZINE HYDROCHLORIDE
     Dosage: 10 MG, ONCE A DAY
  6. MORPHINE SULFATE. [Concomitant]
     Active Substance: MORPHINE SULFATE
     Dosage: 10 MG/5ML THREE TIMES A DAY
  7. RANITIDINE HCL [Concomitant]
     Active Substance: RANITIDINE HYDROCHLORIDE
     Dosage: 150 MG, ONCE A DAY
  8. SKELAXIN [Concomitant]
     Active Substance: METAXALONE
     Dosage: 800 MG, TID
  9. LISINOPRIL. [Concomitant]
     Active Substance: LISINOPRIL
     Dosage: 20 MG, AS NEEDED
  10. NEURONTIN [Concomitant]
     Active Substance: GABAPENTIN
     Dosage: 600 MG, THREE TIMES A DAY
  11. SIMPONI [Concomitant]
     Active Substance: GOLIMUMAB
     Dosage: 50 MG/0.5 MLONCE A MONTH
  12. FLONASE [Concomitant]
     Active Substance: FLUTICASONE PROPIONATE
     Dosage: 0.06 MG, AS DIRECTED BY TWO SPRAY
  13. METHOTREXATE. [Concomitant]
     Active Substance: METHOTREXATE
     Dosage: 25 MG/ML, ONCE A WEEK
  14. WARFARIN SODIUM. [Concomitant]
     Active Substance: WARFARIN SODIUM
     Dosage: 5 MG, ONCE A DAY
  15. CRESTAR [Concomitant]
     Dosage: 10 MG, ONCE DAY
  16. PANTOPRAZOLE [Concomitant]
     Active Substance: PANTOPRAZOLE SODIUM
     Dosage: 40 MG, ONCE A DAY
  17. ADVAIR HFA [Concomitant]
     Active Substance: FLUTICASONE PROPIONATE\SALMETEROL XINAFOATE
     Dosage: 250-50, MCG TWICE A DAY.
  18. EFFEXOR [Concomitant]
     Active Substance: VENLAFAXINE HYDROCHLORIDE
     Dosage: 150 MG, ONCE A DAY
  19. METOPROLOL TARTRATE. [Concomitant]
     Active Substance: METOPROLOL TARTRATE
     Dosage: 50 MG, THREE TIMES A DAY
  20. PREDNISONE. [Concomitant]
     Active Substance: PREDNISONE
     Dosage: 5 MG, ONCE A DAY
  21. TRAMADOL. [Concomitant]
     Active Substance: TRAMADOL
     Dosage: 50 MG, FOUR TIMES A DAY

REACTIONS (1)
  - Off label use [Unknown]
